FAERS Safety Report 17557023 (Version 1)
Quarter: 2020Q1

REPORT INFORMATION
  Report Type: Spontaneous
  Country: US (occurrence: US)
  Receive Date: 20200318
  Receipt Date: 20200318
  Transmission Date: 20200409
  Serious: No
  Sender: FDA-Public Use
  Company Number: US-CELGENEUS-USA-20200304973

PATIENT
  Sex: Female

DRUGS (1)
  1. OTEZLA [Suspect]
     Active Substance: APREMILAST
     Indication: PSORIATIC ARTHROPATHY
     Dosage: 60 MILLIGRAM
     Route: 048
     Dates: start: 20181203

REACTIONS (3)
  - Swelling [Not Recovered/Not Resolved]
  - Pain [Not Recovered/Not Resolved]
  - Psoriatic arthropathy [Not Recovered/Not Resolved]
